FAERS Safety Report 6215305-1 (Version None)
Quarter: 2009Q2

REPORT INFORMATION
  Report Type: 
  Country: None (occurrence: None)
  Receive Date: 20090604
  Receipt Date: 20090527
  Transmission Date: 20091009
  Serious: Yes (Hospitalization)
  Sender: FDA-Public Use
  Company Number: US-MYLANLABS-2009S1009428

PATIENT
  Age: 43 Year
  Sex: Female
  Weight: 73.48 kg

DRUGS (9)
  1. FENTANYL TRANSDERMAL SYSTEM [Suspect]
     Indication: ABDOMINAL PAIN
     Dosage: CHANGED Q48H
     Route: 062
     Dates: start: 20050101
  2. LIBRAX [Concomitant]
     Indication: PANCREATIC INJURY
     Route: 048
  3. ROXANOL [Concomitant]
     Indication: PANCREATIC INJURY
     Route: 048
  4. ZOVIRAX [Concomitant]
     Route: 061
  5. PHENERGAN [Concomitant]
     Indication: PANCREATIC INJURY
     Route: 048
  6. COMPAZINE [Concomitant]
     Indication: PANCREATIC INJURY
     Route: 048
  7. CELEXA [Concomitant]
     Indication: PANCREATIC INJURY
     Route: 048
  8. CLONAZEPAM [Concomitant]
     Indication: PANCREATIC INJURY
     Route: 048
  9. ZOFRAN [Concomitant]
     Indication: PANCREATIC INJURY
     Route: 048

REACTIONS (4)
  - ABDOMINAL PAIN [None]
  - DRUG SCREEN NEGATIVE [None]
  - NAUSEA [None]
  - VOMITING [None]
